FAERS Safety Report 10613945 (Version 1)
Quarter: 2014Q4

REPORT INFORMATION
  Report Type: Spontaneous
  Country: US (occurrence: US)
  Receive Date: 20141128
  Receipt Date: 20141128
  Transmission Date: 20150529
  Serious: No
  Sender: FDA-Public Use
  Company Number: US-GLAXOSMITHKLINE-A1089469A

PATIENT

DRUGS (11)
  1. RED YEAST RICE [Concomitant]
     Active Substance: DIETARY SUPPLEMENT
  2. HERBAL SUPPLEMENT [Concomitant]
     Active Substance: HERBALS
  3. HALCION [Concomitant]
     Active Substance: TRIAZOLAM
  4. CO-Q10 [Concomitant]
  5. IRON SUPPLEMENT [Concomitant]
     Active Substance: IRON
  6. CLARITIN [Concomitant]
     Active Substance: LORATADINE
  7. WELLBUTRIN SR [Suspect]
     Active Substance: BUPROPION HYDROCHLORIDE
     Indication: ACUTE STRESS DISORDER
  8. WELLBUTRIN SR [Suspect]
     Active Substance: BUPROPION HYDROCHLORIDE
     Indication: DEPRESSION
     Dosage: 150 MG, VARIABLE FREQUENCY
     Route: 048
     Dates: start: 2008
  9. BABY ASPIRIN [Concomitant]
     Active Substance: ASPIRIN
  10. WELLBUTRIN SR [Suspect]
     Active Substance: BUPROPION HYDROCHLORIDE
     Indication: ANXIETY
  11. HERBS [Concomitant]
     Indication: DYSPEPSIA

REACTIONS (1)
  - Dental implantation [Unknown]
